FAERS Safety Report 9258393 (Version 1)
Quarter: 2013Q2

REPORT INFORMATION
  Report Type: Spontaneous
  Country: NG (occurrence: NG)
  Receive Date: 20130426
  Receipt Date: 20130426
  Transmission Date: 20140414
  Serious: Yes (Hospitalization, Other)
  Sender: FDA-Public Use
  Company Number: NG-ROCHE-1214592

PATIENT
  Age: 46 Year
  Sex: Female

DRUGS (3)
  1. RITUXIMAB [Suspect]
     Indication: CASTLEMAN^S DISEASE
     Route: 065
     Dates: start: 20121019
  2. TRUVADA [Concomitant]
     Indication: HIV INFECTION
     Dosage: STRENGTH: 300/600 MG
     Route: 065
     Dates: start: 2004
  3. SPIRONOLACTONE W/FUROSEMIDE [Concomitant]
     Indication: OEDEMA

REACTIONS (8)
  - Paraparesis [Not Recovered/Not Resolved]
  - Asthenia [Unknown]
  - Hemiparesis [Unknown]
  - Muscular weakness [Unknown]
  - Dysarthria [Unknown]
  - Proteinuria [Unknown]
  - Hypoproteinaemia [Unknown]
  - Hypoalbuminaemia [Unknown]
